FAERS Safety Report 20964262 (Version 2)
Quarter: 2023Q1

REPORT INFORMATION
  Report Type: Spontaneous
  Country: CN (occurrence: CN)
  Receive Date: 20220615
  Receipt Date: 20230302
  Transmission Date: 20230417
  Serious: Yes (Other)
  Sender: FDA-Public Use
  Company Number: CN-PFIZER INC-PV202200002081

PATIENT
  Age: 11 Month
  Sex: Female
  Weight: 9 kg

DRUGS (1)
  1. AZITHROMYCIN [Suspect]
     Active Substance: AZITHROMYCIN
     Indication: Mycoplasma infection
     Dosage: 0.09 G, 1X/DAY
     Route: 048
     Dates: start: 20220610, end: 20220611

REACTIONS (3)
  - Infantile vomiting [Recovering/Resolving]
  - Diarrhoea [Recovering/Resolving]
  - Retching [Recovering/Resolving]

NARRATIVE: CASE EVENT DATE: 20220611
